FAERS Safety Report 11935657 (Version 1)
Quarter: 2016Q1

REPORT INFORMATION
  Report Type: Not Available
  Country: AT (occurrence: AT)
  Receive Date: 20160121
  Receipt Date: 20160121
  Transmission Date: 20160526
  Serious: Yes (Death)
  Sender: FDA-Public Use
  Company Number: AT-SYNTHON BV-NL01PV16_40402

PATIENT
  Age: 37 Year
  Sex: Male
  Weight: 85 kg

DRUGS (15)
  1. SEROQUEL [Suspect]
     Active Substance: QUETIAPINE FUMARATE
     Dosage: 1 DF (200 MG), BID
     Dates: end: 20150806
  2. ESOMEPRAZOLE [Concomitant]
     Active Substance: ESOMEPRAZOLE
     Dosage: 1 DF (DUROVIT 40 MG), QD
  3. ZOLPIDEM [Suspect]
     Active Substance: ZOLPIDEM\ZOLPIDEM TARTRATE
     Dosage: 2 DF (10 MG), QD
     Dates: end: 20150806
  4. MIRTABENE [Suspect]
     Active Substance: MIRTAZAPINE
     Dosage: 1 DF (30 MG), QD (0-0-1)
     Dates: end: 20150806
  5. VALPROIC ACID. [Suspect]
     Active Substance: VALPROIC ACID
     Dosage: UNK
     Dates: end: 20150806
  6. SIMVASTATIN RATIOPHARM [Concomitant]
     Active Substance: SIMVASTATIN
     Dosage: 20 MG, QD
  7. SINGULAIR [Concomitant]
     Active Substance: MONTELUKAST SODIUM
     Dosage: 10 MG, QD (1-0-0)
  8. CONCOR [Concomitant]
     Active Substance: BISOPROLOL FUMARATE
     Dosage: 1 DF (5 MG), QD
  9. LEVETIRACETAM ACTAVIS [Suspect]
     Active Substance: LEVETIRACETAM
     Dosage: 1000 MG, BID
     Dates: end: 20150806
  10. CANDESARTAN CILEXETIL AND HYDROCHLOROTHIAZIDE [Concomitant]
     Active Substance: CANDESARTAN CILEXETIL\HYDROCHLOROTHIAZIDE
     Dosage: 1 DF (12,5/16MG) QD
  11. BERODUAL [Concomitant]
     Active Substance: FENOTEROL HYDROBROMIDE\IPRATROPIUM BROMIDE
     Dosage: UNK
  12. TAMSU [Concomitant]
     Active Substance: TAMSULOSIN HYDROCHLORIDE
     Dosage: 1 DF (0.4 MG), QD
  13. VESICARE [Concomitant]
     Active Substance: SOLIFENACIN SUCCINATE
     Dosage: 1 DF (5 MG), QD
  14. PRADAXA [Concomitant]
     Active Substance: DABIGATRAN ETEXILATE MESYLATE
     Dosage: 1 DF (150 MG), BID
  15. SERETIDE [Concomitant]
     Active Substance: FLUTICASONE FUROATE\SALMETEROL XINAFOATE
     Dosage: 2 DF, BID

REACTIONS (14)
  - Diplopia [Unknown]
  - Aggression [Unknown]
  - Aspiration [Unknown]
  - Nausea [Unknown]
  - Syncope [Unknown]
  - Toxicity to various agents [Fatal]
  - Dizziness [Unknown]
  - Indifference [Unknown]
  - Ataxia [Unknown]
  - Insomnia [Unknown]
  - Listless [Unknown]
  - Conduct disorder [Unknown]
  - Retching [Unknown]
  - Fatigue [Unknown]

NARRATIVE: CASE EVENT DATE: 201505
